FAERS Safety Report 5284817-X (Version None)
Quarter: 2007Q1

REPORT INFORMATION
  Report Type: 
  Country: None (occurrence: None)
  Receive Date: 20061229
  Receipt Date: 20060503
  Transmission Date: 20070707
  Serious: Yes (Death, Hospitalization)
  Sender: FDA-Public Use
  Company Number: PHEH2006US04898

PATIENT
  Age: 53 Year
  Sex: Male

DRUGS (10)
  1. CLOZARIL [Suspect]
     Dosage: 100 MG, TID, ORAL
     Route: 048
     Dates: start: 20060329
  2. PROMETHAZINE [Concomitant]
  3. AMLODIPINE [Concomitant]
  4. CAPTOPRIL [Concomitant]
  5. PREDNISONE TAB [Concomitant]
  6. SINGULAIR [Concomitant]
  7. CHLORPROMAZINE (CHLOPROMAZINE) [Concomitant]
  8. BENZTROPINE MESYLATE [Concomitant]
  9. TRAZODONE HCL [Concomitant]
  10. DEPAKOTE [Concomitant]

REACTIONS (5)
  - ABDOMINAL DISCOMFORT [None]
  - CHEST DISCOMFORT [None]
  - DEATH [None]
  - GAIT DISTURBANCE [None]
  - MALAISE [None]
